FAERS Safety Report 10302013 (Version 1)
Quarter: 2014Q3

REPORT INFORMATION
  Report Type: Report from Study
  Country: CO (occurrence: CO)
  Receive Date: 20140714
  Receipt Date: 20140714
  Transmission Date: 20150326
  Serious: Yes (Hospitalization)
  Sender: FDA-Public Use
  Company Number: CO-SA-2014SA090550

PATIENT
  Age: 75 Year
  Sex: Female

DRUGS (3)
  1. LANTUS [Suspect]
     Active Substance: INSULIN GLARGINE
     Indication: DIABETES MELLITUS
     Dosage: DOSE:24 UNIT(S)
     Route: 058
     Dates: start: 201307, end: 20140701
  2. METFORMIN [Concomitant]
     Active Substance: METFORMIN HYDROCHLORIDE
     Indication: DIABETES MELLITUS
  3. APIDRA [Suspect]
     Active Substance: INSULIN GLULISINE
     Indication: DIABETES MELLITUS
     Dosage: DOSE:24 UNIT(S)
     Route: 058
     Dates: start: 201307, end: 20140701

REACTIONS (3)
  - Urinary tract infection [Recovered/Resolved]
  - Pneumonia [Recovered/Resolved]
  - Hyperglycaemia [Unknown]

NARRATIVE: CASE EVENT DATE: 20140614
